FAERS Safety Report 8869109 (Version 1)
Quarter: 2012Q4

REPORT INFORMATION
  Report Type: Spontaneous
  Country: US (occurrence: None)
  Receive Date: 20121026
  Receipt Date: 20121026
  Transmission Date: 20130627
  Serious: Yes (Life-Threatening, Hospitalization, Other)
  Sender: FDA-Public Use
  Company Number: None

PATIENT
  Age: 77 Year
  Sex: Male
  Weight: 95.26 kg

DRUGS (3)
  1. METHYLPREDNISOLONE [Suspect]
     Indication: SCIATICA
     Dates: start: 20120613
  2. METHYLPREDNISOLONE [Suspect]
     Indication: SCIATICA
     Dates: start: 20120628
  3. METHYLPREDNISOLONE [Suspect]
     Indication: SCIATICA
     Dates: start: 20120717

REACTIONS (8)
  - Headache [None]
  - Neck pain [None]
  - Pharyngeal oedema [None]
  - Rash [None]
  - Thrombosis [None]
  - Hypoaesthesia [None]
  - Pain [None]
  - Pneumonia [None]
